FAERS Safety Report 15690238 (Version 1)
Quarter: 2018Q4

REPORT INFORMATION
  Report Type: Spontaneous
  Country: US (occurrence: US)
  Receive Date: 20181126
  Receipt Date: 20181126
  Transmission Date: 20190205
  Serious: Yes (Hospitalization)
  Sender: FDA-Public Use
  Company Number: None

PATIENT
  Age: 33 Year
  Sex: Male

DRUGS (1)
  1. INFLIXIMAB-DYYB [Suspect]
     Active Substance: INFLIXIMAB-DYYB
     Indication: CROHN^S DISEASE
     Route: 042
     Dates: start: 20171215, end: 20180607

REACTIONS (3)
  - Lupus-like syndrome [None]
  - Contrast media reaction [None]
  - Tachycardia paroxysmal [None]

NARRATIVE: CASE EVENT DATE: 20180607
